FAERS Safety Report 8839712 (Version 1)
Quarter: 2012Q4

REPORT INFORMATION
  Report Type: Spontaneous
  Country: JP (occurrence: None)
  Receive Date: 20121011
  Receipt Date: 20121011
  Transmission Date: 20130627
  Serious: Yes (Other)
  Sender: FDA-Public Use
  Company Number: JP-2012-16251

PATIENT
  Age: 60 Year
  Sex: Female

DRUGS (1)
  1. PLETAAL [Suspect]
     Route: 048

REACTIONS (4)
  - Bradycardia [None]
  - Palpitations [None]
  - Arrhythmia [None]
  - Headache [None]
